FAERS Safety Report 14292769 (Version 2)
Quarter: 2018Q2

REPORT INFORMATION
  Report Type: Report from Study
  Country: US (occurrence: US)
  Receive Date: 20171215
  Receipt Date: 20180428
  Transmission Date: 20180711
  Serious: Yes (Other)
  Sender: FDA-Public Use
  Company Number: US-ARIAD PHARMACEUTICALS, INC-2017US009189

PATIENT
  Sex: Female
  Weight: 80.27 kg

DRUGS (1)
  1. PONATINIB [Suspect]
     Active Substance: PONATINIB
     Indication: CHRONIC MYELOID LEUKAEMIA
     Dosage: 45 MG, QD
     Route: 048
     Dates: start: 20170522, end: 20180411

REACTIONS (3)
  - Retinal vascular disorder [Unknown]
  - Renal vessel disorder [Unknown]
  - Skin exfoliation [Unknown]
